FAERS Safety Report 8411798-X (Version None)
Quarter: 2012Q2

REPORT INFORMATION
  Report Type: 
  Country: None (occurrence: None)
  Receive Date: 20120605
  Receipt Date: 20120530
  Transmission Date: 20120825
  Serious: Yes (Other)
  Sender: FDA-Public Use
  Company Number: US-BAYER-2012-014505

PATIENT
  Age: 28 Year
  Sex: Female
  Weight: 63 kg

DRUGS (5)
  1. ASCORBIC ACID [Concomitant]
     Dosage: UNK
     Route: 048
     Dates: start: 20020101
  2. YAZ [Suspect]
     Indication: OVARIAN CYST
     Dosage: UNK
     Dates: start: 20090201, end: 20090401
  3. IBUPROFEN [Concomitant]
     Dosage: UNK
     Route: 048
     Dates: start: 20090527
  4. YAZ [Suspect]
     Indication: ENDOMETRIOSIS
     Dosage: UNK
     Dates: start: 20090801, end: 20091101
  5. ORTHO TRI-CYCLEN [Concomitant]

REACTIONS (5)
  - ABDOMINAL PAIN [None]
  - CHOLELITHIASIS [None]
  - GASTROOESOPHAGEAL REFLUX DISEASE [None]
  - PAIN [None]
  - CHOLECYSTITIS CHRONIC [None]
